FAERS Safety Report 8274510-3 (Version None)
Quarter: 2012Q2

REPORT INFORMATION
  Report Type: 
  Country: None (occurrence: None)
  Receive Date: 20120409
  Receipt Date: 20120326
  Transmission Date: 20120825
  Serious: Yes (Hospitalization)
  Sender: FDA-Public Use
  Company Number: 2012MA003992

PATIENT
  Age: 64 Year
  Sex: Male
  Weight: 74 kg

DRUGS (2)
  1. TRAMADOL HYDROCHLORIDE [Suspect]
     Indication: PAIN
     Dosage: 300 MG;QD;PO
     Route: 048
  2. WARFARIN SODIUM [Concomitant]

REACTIONS (5)
  - PNEUMATOSIS INTESTINALIS [None]
  - ILEAL STENOSIS [None]
  - MECHANICAL ILEUS [None]
  - DEHYDRATION [None]
  - OCCULT BLOOD POSITIVE [None]
